FAERS Safety Report 9302271 (Version 2)
Quarter: 2015Q2

REPORT INFORMATION
  Report Type: Report from Study
  Country: US (occurrence: US)
  Receive Date: 20130522
  Receipt Date: 20150414
  Transmission Date: 20150821
  Serious: Yes (Death)
  Sender: FDA-Public Use
  Company Number: US-ROCHE-1226768

PATIENT
  Sex: Male

DRUGS (2)
  1. RITUXAN [Suspect]
     Active Substance: RITUXIMAB
     Indication: CONGENITAL APLASTIC ANAEMIA
  2. RITUXAN [Suspect]
     Active Substance: RITUXIMAB
     Indication: APLASIA PURE RED CELL
     Route: 065
     Dates: start: 20100329

REACTIONS (2)
  - Off label use [Unknown]
  - Death [Fatal]
